FAERS Safety Report 13615997 (Version 1)
Quarter: 2017Q2

REPORT INFORMATION
  Report Type: Spontaneous
  Country: IT (occurrence: IT)
  Receive Date: 20170606
  Receipt Date: 20170606
  Transmission Date: 20170830
  Serious: Yes (Hospitalization)
  Sender: FDA-Public Use
  Company Number: IT-BAYER-2017-100686

PATIENT
  Age: 75 Year
  Sex: Male

DRUGS (1)
  1. STIVARGA [Suspect]
     Active Substance: REGORAFENIB
     Indication: ADENOCARCINOMA OF COLON
     Dosage: 160 MG, QD
     Route: 048
     Dates: start: 20170309, end: 20170319

REACTIONS (3)
  - Malaise [Recovering/Resolving]
  - Dyspnoea [Recovering/Resolving]
  - Hypertension [Recovering/Resolving]

NARRATIVE: CASE EVENT DATE: 20170319
